FAERS Safety Report 4891174-7 (Version None)
Quarter: 2006Q1

REPORT INFORMATION
  Report Type: 
  Country: None (occurrence: None)
  Receive Date: 20060125
  Receipt Date: 20060118
  Transmission Date: 20060701
  Serious: Yes (Other)
  Sender: FDA-Public Use
  Company Number: US-GLAXOSMITHKLINE-A0589858A

PATIENT
  Age: 63 Year
  Sex: Female

DRUGS (4)
  1. WELLBUTRIN [Suspect]
     Indication: DEPRESSION
     Route: 048
     Dates: start: 20051219, end: 20051221
  2. SYNTHROID [Concomitant]
  3. LUNESTA [Concomitant]
  4. AMBIEN [Concomitant]

REACTIONS (5)
  - APHASIA [None]
  - CONVULSION [None]
  - ILL-DEFINED DISORDER [None]
  - MOVEMENT DISORDER [None]
  - SPEECH DISORDER [None]
